FAERS Safety Report 24915605 (Version 1)
Quarter: 2025Q1

REPORT INFORMATION
  Report Type: Spontaneous
  Country: FR (occurrence: FR)
  Receive Date: 20250203
  Receipt Date: 20250203
  Transmission Date: 20250409
  Serious: Yes (Other)
  Sender: ROCHE
  Company Number: None

PATIENT
  Age: 32 Year
  Sex: Female

DRUGS (4)
  1. XOLAIR [Suspect]
     Active Substance: OMALIZUMAB
     Indication: Urticaria chronic
     Dosage: 300 MG, EVERY 4 WEEKS (300 MG TOUTES LES 4 SEMAINES)
     Route: 058
     Dates: start: 20230327, end: 20240709
  2. XOLAIR [Suspect]
     Active Substance: OMALIZUMAB
     Dosage: 375 MG, TIW (375 MG TOUTES LES 3 SEMAINES)
     Route: 058
     Dates: start: 20240710, end: 20241105
  3. XOLAIR [Suspect]
     Active Substance: OMALIZUMAB
     Dosage: 450 MG, BIW (450 MG TOUTES LES 2 SEMAINES)
     Route: 058
     Dates: start: 20241106
  4. LEVOCETIRIZINE DIHYDROCHLORIDE [Suspect]
     Active Substance: LEVOCETIRIZINE DIHYDROCHLORIDE
     Indication: Urticaria chronic
     Dosage: 20 MG, QD (20 MG/J)
     Route: 048
     Dates: start: 20230115

REACTIONS (2)
  - Asthenia [Not Recovered/Not Resolved]
  - Weight increased [Not Recovered/Not Resolved]

NARRATIVE: CASE EVENT DATE: 20241101
